FAERS Safety Report 7636362-1 (Version None)
Quarter: 2011Q3

REPORT INFORMATION
  Report Type: 
  Country: None (occurrence: None)
  Receive Date: 20110726
  Receipt Date: 20110719
  Transmission Date: 20111222
  Serious: Yes (Hospitalization)
  Sender: FDA-Public Use
  Company Number: JP-GLAXOSMITHKLINE-B0724005A

PATIENT
  Sex: Male

DRUGS (6)
  1. ROHYPNOL [Concomitant]
     Dosage: 1MG PER DAY
     Route: 048
     Dates: end: 20110527
  2. MAGMITT [Concomitant]
     Dosage: 1980MG PER DAY
     Route: 048
     Dates: end: 20110527
  3. DEPAKENE [Suspect]
     Indication: PRODUCT USED FOR UNKNOWN INDICATION
     Dosage: 800MG PER DAY
     Route: 048
     Dates: start: 20091109, end: 20110527
  4. LAMICTAL [Suspect]
     Indication: EPILEPSY
     Dosage: 25MG ALTERNATE DAYS
     Route: 048
     Dates: start: 20110428, end: 20110525
  5. DEPAS [Concomitant]
     Dosage: .5MG PER DAY
     Route: 048
     Dates: start: 20090907, end: 20110527
  6. CHINESE MEDICINE [Concomitant]
     Dosage: 7.5MG PER DAY
     Route: 048
     Dates: end: 20110527

REACTIONS (6)
  - ERYTHEMA [None]
  - HEPATIC ENZYME INCREASED [None]
  - PYREXIA [None]
  - LYMPHADENOPATHY [None]
  - EYELID OEDEMA [None]
  - DRUG RASH WITH EOSINOPHILIA AND SYSTEMIC SYMPTOMS [None]
